FAERS Safety Report 9608613 (Version 1)
Quarter: 2013Q4

REPORT INFORMATION
  Report Type: Spontaneous
  Country: US (occurrence: US)
  Receive Date: 20131009
  Receipt Date: 20131009
  Transmission Date: 20140711
  Serious: Yes (Other)
  Sender: FDA-Public Use
  Company Number: US-PFIZER INC-2013288309

PATIENT
  Age: 64 Year
  Sex: Female
  Weight: 81.63 kg

DRUGS (8)
  1. CELEBREX [Suspect]
     Indication: ARTHRITIS
     Dosage: UNK
     Dates: start: 2000
  2. CELEBREX [Suspect]
     Indication: MUSCULOSKELETAL PAIN
     Dosage: UNK, 1X/DAY
     Dates: start: 2002
  3. ADVIL [Suspect]
     Indication: ARTHRITIS
     Dosage: UNK
     Dates: end: 2002
  4. ADVIL [Suspect]
     Indication: MUSCULOSKELETAL PAIN
  5. ASPIRIN [Suspect]
     Indication: ARTHRITIS
     Dosage: UNK
     Dates: end: 2002
  6. ASPIRIN [Suspect]
     Indication: MUSCULOSKELETAL PAIN
  7. TYLENOL [Suspect]
     Indication: ARTHRITIS
     Dosage: UNK
     Dates: end: 2002
  8. TYLENOL [Suspect]
     Indication: MUSCULOSKELETAL PAIN

REACTIONS (2)
  - Arthropathy [Unknown]
  - Drug ineffective [Unknown]
